FAERS Safety Report 8608068 (Version 2)
Quarter: 2013Q4

REPORT INFORMATION
  Report Type: Spontaneous
  Country: US (occurrence: US)
  Receive Date: 20120611
  Receipt Date: 20131011
  Transmission Date: 20140711
  Serious: Yes (Hospitalization)
  Sender: FDA-Public Use
  Company Number: US-ASTRAZENECA-2012SE35141

PATIENT
  Age: 56 Year
  Sex: Female
  Weight: 113.4 kg

DRUGS (10)
  1. NEXIUM [Suspect]
     Indication: GASTROOESOPHAGEAL REFLUX DISEASE
     Route: 048
     Dates: start: 2007, end: 2010
  2. NEXIUM [Suspect]
     Indication: GASTROOESOPHAGEAL REFLUX DISEASE
     Route: 048
     Dates: start: 200804
  3. MILK OF MAG [Concomitant]
  4. LISINOPRIL [Concomitant]
  5. HYDROCODONE [Concomitant]
     Dosage: 10/325
  6. SYNTHROID [Concomitant]
  7. POTASSIUM [Concomitant]
  8. WATER PILLS [Concomitant]
  9. SOMA [Concomitant]
  10. ATERAX [Concomitant]

REACTIONS (7)
  - Lower limb fracture [Unknown]
  - Osteoporosis [Unknown]
  - Multiple fractures [Unknown]
  - Arthritis [Unknown]
  - Osteopenia [Unknown]
  - Rheumatoid arthritis [Unknown]
  - Calcium deficiency [Unknown]
